FAERS Safety Report 5816069-3 (Version None)
Quarter: 2008Q3

REPORT INFORMATION
  Report Type: 
  Country: None (occurrence: None)
  Receive Date: 20080716
  Receipt Date: 20080716
  Transmission Date: 20090109
  Serious: Yes (Other)
  Sender: FDA-Public Use
  Company Number: None

PATIENT
  Sex: Male
  Weight: 63.5036 kg

DRUGS (2)
  1. SINGULAIR [Suspect]
     Indication: DERMOGRAPHISM
     Dosage: 10 MG DAILEY PO
     Route: 048
     Dates: start: 20080709, end: 20080711
  2. SINGULAIR [Suspect]
     Indication: MULTIPLE ALLERGIES
     Dosage: 10 MG DAILEY PO
     Route: 048
     Dates: start: 20080709, end: 20080711

REACTIONS (11)
  - ABNORMAL DREAMS [None]
  - BLOOD PRESSURE INCREASED [None]
  - EMOTIONAL DISORDER [None]
  - FEAR [None]
  - FEELING ABNORMAL [None]
  - HALLUCINATION [None]
  - HEART RATE INCREASED [None]
  - HYPOAESTHESIA [None]
  - INSOMNIA [None]
  - PARAESTHESIA [None]
  - THINKING ABNORMAL [None]
